FAERS Safety Report 5531703-3 (Version None)
Quarter: 2007Q4

REPORT INFORMATION
  Report Type: 
  Country: None (occurrence: None)
  Receive Date: 20071203
  Receipt Date: 20071119
  Transmission Date: 20080405
  Serious: Yes (Death)
  Sender: FDA-Public Use
  Company Number: GB-AMGEN-UK235529

PATIENT
  Sex: Female
  Weight: 106.7 kg

DRUGS (20)
  1. MIMPARA [Suspect]
     Indication: HYPERPARATHYROIDISM SECONDARY
     Route: 048
     Dates: start: 20061212
  2. SIROLIMUS [Suspect]
     Route: 048
     Dates: start: 20031101, end: 20070720
  3. NEFOPAM HYDROCHLORIDE [Concomitant]
     Route: 048
     Dates: start: 20060328, end: 20070720
  4. KAPAKE [Concomitant]
     Route: 048
     Dates: start: 20060407, end: 20070601
  5. AUGMENTIN [Concomitant]
     Route: 048
     Dates: start: 20060613, end: 20070726
  6. PIRITON [Concomitant]
     Route: 048
     Dates: start: 20061017, end: 20070720
  7. LISINOPRIL [Concomitant]
     Route: 048
     Dates: start: 20070123, end: 20070601
  8. CLEXANE [Concomitant]
     Route: 058
     Dates: start: 20070217, end: 20070227
  9. LACTULOSE [Concomitant]
     Route: 048
     Dates: start: 20070217, end: 20070601
  10. WARFARIN SODIUM [Concomitant]
     Route: 048
     Dates: start: 20070227, end: 20070522
  11. ALFACALCIDOL [Concomitant]
     Route: 048
     Dates: start: 20070327, end: 20070601
  12. SODIUM BICARBONATE [Concomitant]
     Route: 048
     Dates: start: 20070521, end: 20070720
  13. DIHYDROCODEINE [Concomitant]
     Route: 048
     Dates: start: 20070601, end: 20070619
  14. FENTANYL [Concomitant]
     Route: 048
     Dates: start: 20070601, end: 20070619
  15. RENAGEL [Concomitant]
     Route: 048
     Dates: start: 20070601, end: 20070720
  16. SPIRONOLACTONE [Concomitant]
     Route: 048
     Dates: start: 20070601, end: 20070702
  17. ONE-ALPHA [Concomitant]
     Route: 048
     Dates: start: 20070619, end: 20070726
  18. NYSTATIN [Concomitant]
     Route: 048
     Dates: start: 20070702, end: 20070720
  19. PREDNISOLONE [Concomitant]
     Route: 048
     Dates: start: 20070720, end: 20070726
  20. ALLOPURINOL [Concomitant]
     Route: 048
     Dates: start: 20070720, end: 20070720

REACTIONS (3)
  - CARDIAC FAILURE [None]
  - MYOCARDIAL ISCHAEMIA [None]
  - PROTEINURIA [None]
